FAERS Safety Report 11758708 (Version 1)
Quarter: 2015Q4

REPORT INFORMATION
  Report Type: Spontaneous
  Country: US (occurrence: US)
  Receive Date: 20151120
  Receipt Date: 20151120
  Transmission Date: 20160304
  Serious: Yes (Other)
  Sender: FDA-Public Use
  Company Number: US-IPCA LABORATORIES LIMITED-IPC201511-000731

PATIENT
  Age: 18 Year
  Sex: Female

DRUGS (1)
  1. WARFARIN [Suspect]
     Active Substance: WARFARIN
     Indication: RENAL VEIN THROMBOSIS

REACTIONS (3)
  - Anticoagulation drug level below therapeutic [None]
  - Pulmonary infarction [None]
  - Pulmonary embolism [Recovered/Resolved]
